FAERS Safety Report 17173105 (Version 1)
Quarter: 2019Q4

REPORT INFORMATION
  Report Type: Report from Study
  Country: BR (occurrence: BR)
  Receive Date: 20191218
  Receipt Date: 20191218
  Transmission Date: 20200122
  Serious: Yes (Other)
  Sender: FDA-Public Use
  Company Number: PHHY2019BR225919

PATIENT
  Age: 59 Year
  Sex: Female

DRUGS (2)
  1. COSENTYX [Suspect]
     Active Substance: SECUKINUMAB
     Indication: ANKYLOSING SPONDYLITIS
     Dosage: UNK UNK, Q4W
     Route: 065
     Dates: start: 201906
  2. METHOTREXATE. [Suspect]
     Active Substance: METHOTREXATE
     Indication: PRODUCT USED FOR UNKNOWN INDICATION
     Dosage: UNK
     Route: 065

REACTIONS (18)
  - Dyspnoea [Not Recovered/Not Resolved]
  - Bronchitis [Unknown]
  - Arthritis [Unknown]
  - Fatigue [Unknown]
  - Urinary tract infection [Recovered/Resolved]
  - Hypoacusis [Unknown]
  - Osteoarthritis [Unknown]
  - Spondylitis [Unknown]
  - Pain [Recovering/Resolving]
  - Pain in extremity [Unknown]
  - Carpal tunnel syndrome [Unknown]
  - Speech disorder [Unknown]
  - Malaise [Unknown]
  - Arthralgia [Recovering/Resolving]
  - Concomitant disease aggravated [Unknown]
  - Arrhythmia [Not Recovered/Not Resolved]
  - Coronary artery occlusion [Not Recovered/Not Resolved]
  - Musculoskeletal stiffness [Unknown]

NARRATIVE: CASE EVENT DATE: 20190925
